FAERS Safety Report 7862741-3 (Version None)
Quarter: 2011Q4

REPORT INFORMATION
  Report Type: 
  Country: None (occurrence: None)
  Receive Date: 20111027
  Receipt Date: 20101112
  Transmission Date: 20120403
  Serious: No
  Sender: FDA-Public Use
  Company Number: US-AMGEN-USASP2010004757

PATIENT
  Age: 61 Year
  Sex: Male

DRUGS (5)
  1. METHOTREXATE [Concomitant]
  2. PRILOSEC [Concomitant]
     Dosage: 20 MG, UNK
  3. ENBREL [Suspect]
     Dosage: 50 MG, UNK
     Route: 058
  4. EXFORGE [Concomitant]
  5. OXCARBAZEPINE [Concomitant]
     Dosage: 150 MG, UNK

REACTIONS (3)
  - CONTUSION [None]
  - HAEMATOCHEZIA [None]
  - MUSCULOSKELETAL DISCOMFORT [None]
